FAERS Safety Report 7699485-7 (Version None)
Quarter: 2011Q3

REPORT INFORMATION
  Report Type: 
  Country: None (occurrence: None)
  Receive Date: 20110820
  Receipt Date: 20110125
  Transmission Date: 20111222
  Serious: No
  Sender: FDA-Public Use
  Company Number: US-ALLERGAN-1101101US

PATIENT
  Age: 74 Year
  Sex: Female

DRUGS (11)
  1. APRACLONIDINE HYDROCHLORIDE [Concomitant]
     Indication: PRODUCT USED FOR UNKNOWN INDICATION
  2. LIPITOR [Concomitant]
     Indication: PRODUCT USED FOR UNKNOWN INDICATION
  3. PRILOSEC [Concomitant]
     Indication: PRODUCT USED FOR UNKNOWN INDICATION
     Dosage: UNK
  4. FISH OIL [Concomitant]
     Indication: PRODUCT USED FOR UNKNOWN INDICATION
  5. SANCTURA XR [Suspect]
  6. SOY ISOFLAVONES [Concomitant]
     Indication: PRODUCT USED FOR UNKNOWN INDICATION
  7. SANCTURA XR [Suspect]
     Indication: POLLAKIURIA
     Dosage: 60 MG, QD
     Route: 048
     Dates: start: 20110123, end: 20110124
  8. ASCORBIC ACID [Concomitant]
     Indication: PRODUCT USED FOR UNKNOWN INDICATION
  9. BONIVA [Concomitant]
     Indication: PRODUCT USED FOR UNKNOWN INDICATION
  10. CALCIUM CARBONATE [Concomitant]
     Indication: PRODUCT USED FOR UNKNOWN INDICATION
  11. ASPIRIN [Concomitant]
     Indication: PRODUCT USED FOR UNKNOWN INDICATION
     Dosage: 81 MG, UNK
     Route: 048

REACTIONS (7)
  - HEART RATE INCREASED [None]
  - URINARY RETENTION [None]
  - NAUSEA [None]
  - ABDOMINAL PAIN UPPER [None]
  - DRY MOUTH [None]
  - VOMITING [None]
  - BLOOD PRESSURE INCREASED [None]
